FAERS Safety Report 9708800 (Version 6)
Quarter: 2014Q1

REPORT INFORMATION
  Report Type: Spontaneous
  Country: US (occurrence: US)
  Receive Date: 20131125
  Receipt Date: 20140227
  Transmission Date: 20141002
  Serious: No
  Sender: FDA-Public Use
  Company Number: US-PFIZER INC-2013334843

PATIENT
  Age: 59 Year
  Sex: Female
  Weight: 136 kg

DRUGS (7)
  1. LYRICA [Suspect]
     Indication: PAIN
     Dosage: 100 MG, UNK
  2. LYRICA [Suspect]
     Indication: FIBROMYALGIA
     Dosage: 100 MG, 4X/DAY
     Dates: start: 2011
  3. SYMBICORT [Concomitant]
     Dosage: UNK
  4. LOVASTATIN [Concomitant]
     Dosage: UNK
  5. LEVOTHYROXINE SODIUM [Concomitant]
     Dosage: UNK
  6. PROPRANOLOL [Concomitant]
     Dosage: UNK
  7. PREDNISONE [Concomitant]
     Dosage: UNK
     Dates: start: 1994

REACTIONS (1)
  - Drug ineffective [Unknown]
